FAERS Safety Report 6010015-8 (Version None)
Quarter: 2008Q4

REPORT INFORMATION
  Report Type: 
  Country: None (occurrence: None)
  Receive Date: 20081218
  Receipt Date: 20081126
  Transmission Date: 20090506
  Serious: No
  Sender: FDA-Public Use
  Company Number: NZ-PFIZER INC-2008152232

PATIENT

DRUGS (11)
  1. SUTENT [Suspect]
     Indication: METASTATIC RENAL CELL CARCINOMA
     Dosage: UNK
  2. SUTENT [Suspect]
     Indication: METASTASES TO LUNG
  3. SUTENT [Suspect]
     Indication: METASTASES TO LIVER
  4. CETIRIZINE [Concomitant]
     Dosage: UNK
  5. METOCLOPRAMIDE [Concomitant]
     Dosage: UNK
  6. FENTANYL [Concomitant]
     Dosage: UNK
  7. AREDIA [Concomitant]
     Dosage: UNK
  8. PREDNISONE [Concomitant]
     Dosage: UNK
  9. AMITRIPTYLINE [Concomitant]
     Dosage: UNK
  10. OXYNORM [Concomitant]
     Dosage: UNK
  11. MORPHINE [Concomitant]
     Dosage: UNK

REACTIONS (4)
  - BLOOD COUNT ABNORMAL [None]
  - BONE LESION [None]
  - DISEASE PROGRESSION [None]
  - RENAL CELL CARCINOMA [None]
